FAERS Safety Report 8901649 (Version 1)
Quarter: 2012Q4

REPORT INFORMATION
  Report Type: Spontaneous
  Country: US (occurrence: None)
  Receive Date: 20121108
  Receipt Date: 20121108
  Transmission Date: 20130627
  Serious: Yes (Hospitalization)
  Sender: FDA-Public Use
  Company Number: None

PATIENT
  Age: 73 Year
  Sex: Male
  Weight: 83.5 kg

DRUGS (1)
  1. VEMURAFENIB [Suspect]
     Dosage: 240 MG EVERY DAY PO
     Route: 048
     Dates: start: 20120703, end: 20120710

REACTIONS (9)
  - Skin reaction [None]
  - Rash erythematous [None]
  - Skin disorder [None]
  - Scratch [None]
  - Rash [None]
  - Rash [None]
  - Rash [None]
  - Skin toxicity [None]
  - Drug hypersensitivity [None]
